FAERS Safety Report 17212265 (Version 1)
Quarter: 2019Q4

REPORT INFORMATION
  Report Type: Spontaneous
  Country: NL (occurrence: NL)
  Receive Date: 20191230
  Receipt Date: 20191230
  Transmission Date: 20200122
  Serious: Yes (Hospitalization, Other)
  Sender: FDA-Public Use
  Company Number: NL-TEVA-2019-NL-1158703

PATIENT
  Age: 58 Year
  Sex: Male
  Weight: 78 kg

DRUGS (2)
  1. DICLOFENAC ZETPIL, 100 MG (MILLIGRAM) [Interacting]
     Active Substance: DICLOFENAC
     Indication: GOUT
     Dosage: 2X PER DAY 1 PIECE (100  MG PER 12 HOURS)
     Dates: start: 20190719, end: 20191118
  2. IBUPROFEN. [Suspect]
     Active Substance: IBUPROFEN
     Indication: GOUT
     Dosage: 900 MILLIGRAM DAILY; 300MG 3X DAY IF NECESSARY
     Dates: start: 2019

REACTIONS (3)
  - Gastric ulcer haemorrhage [Recovering/Resolving]
  - Renal failure [Recovering/Resolving]
  - Drug interaction [Recovering/Resolving]

NARRATIVE: CASE EVENT DATE: 201911
